FAERS Safety Report 19293306 (Version 1)
Quarter: 2021Q2

REPORT INFORMATION
  Report Type: Spontaneous
  Country: US (occurrence: US)
  Receive Date: 20210524
  Receipt Date: 20210524
  Transmission Date: 20210717
  Serious: Yes (Other)
  Sender: FDA-Public Use
  Company Number: US-ELI_LILLY_AND_COMPANY-US202105005814

PATIENT
  Age: 68 Year
  Sex: Female

DRUGS (2)
  1. LANTUS [Concomitant]
     Active Substance: INSULIN GLARGINE
     Indication: TYPE 2 DIABETES MELLITUS
     Dosage: UNK, UNKNOWN
  2. HUMALOG KWIKPEN [Suspect]
     Active Substance: INSULIN LISPRO
     Indication: TYPE 2 DIABETES MELLITUS
     Dosage: 14 U, UNKNOWN
     Route: 058

REACTIONS (8)
  - Memory impairment [Not Recovered/Not Resolved]
  - Feeling hot [Unknown]
  - Colon cancer stage III [Not Recovered/Not Resolved]
  - Blood pressure increased [Not Recovered/Not Resolved]
  - Blood pressure increased [Unknown]
  - Hypoacusis [Unknown]
  - Heart rate increased [Unknown]
  - Headache [Unknown]

NARRATIVE: CASE EVENT DATE: 20210511
